FAERS Safety Report 5751425-3 (Version None)
Quarter: 2008Q2

REPORT INFORMATION
  Report Type: 
  Country: None (occurrence: None)
  Receive Date: 20080527
  Receipt Date: 20080507
  Transmission Date: 20081010
  Serious: Yes (Other)
  Sender: FDA-Public Use
  Company Number: 2008AL003891

PATIENT
  Sex: Female
  Weight: 83.4619 kg

DRUGS (9)
  1. DIGOXIN [Suspect]
     Indication: CARDIAC DISORDER
     Dosage: 0.25 MG, DAILY PO
     Route: 048
     Dates: start: 20020101
  2. AMIODARONE HCL [Concomitant]
  3. ASPIRIN [Concomitant]
  4. BENAZEPRIL HYDROCHLORIDE [Concomitant]
  5. COREG [Concomitant]
  6. LASIX [Concomitant]
  7. PRAVASTATIN [Concomitant]
  8. ATIVAN [Concomitant]
  9. POTASSIUM CHLORIDE [Concomitant]

REACTIONS (5)
  - CHEST PAIN [None]
  - DYSPNOEA [None]
  - HEART RATE ABNORMAL [None]
  - NAUSEA [None]
  - VOMITING [None]
